FAERS Safety Report 8265127-5 (Version None)
Quarter: 2012Q2

REPORT INFORMATION
  Report Type: 
  Country: None (occurrence: None)
  Receive Date: 20120406
  Receipt Date: 20120402
  Transmission Date: 20120825
  Serious: Yes (Other)
  Sender: FDA-Public Use
  Company Number: ES-ABBOTT-12P-144-0909587-00

PATIENT
  Age: 71 Year
  Sex: Male

DRUGS (1)
  1. PROCRIN DEPOT 7.5 MG [Suspect]
     Indication: PROSTATE CANCER
     Dates: start: 20120126

REACTIONS (5)
  - PURULENT DISCHARGE [None]
  - INJECTION SITE ERYTHEMA [None]
  - RASH ERYTHEMATOUS [None]
  - SKIN ULCER [None]
  - SUBCUTANEOUS ABSCESS [None]
